FAERS Safety Report 15608068 (Version 2)
Quarter: 2018Q4

REPORT INFORMATION
  Report Type: Spontaneous
  Country: BR (occurrence: BR)
  Receive Date: 20181112
  Receipt Date: 20181126
  Transmission Date: 20190205
  Serious: Yes (Hospitalization)
  Sender: FDA-Public Use
  Company Number: BR-IGSA-SR10007280

PATIENT
  Age: 2 Year
  Sex: Female
  Weight: 12.5 kg

DRUGS (12)
  1. CLOBAZAM. [Concomitant]
     Active Substance: CLOBAZAM
     Dosage: 5 MG, TID
  2. BENADRYL [Concomitant]
     Active Substance: DIPHENHYDRAMINE HYDROCHLORIDE
     Indication: PREMEDICATION
     Dosage: 12 MG, UNK
     Dates: start: 20180913
  3. FLEBOGAMMA DIF [Suspect]
     Active Substance: HUMAN IMMUNOGLOBULIN G
     Dosage: 25 G, QD
     Route: 042
     Dates: start: 20180913, end: 20180913
  4. AMLODIPINE [Concomitant]
     Active Substance: AMLODIPINE BESYLATE
     Dosage: 5 MG, QD
  5. FLEBOGAMMA DIF [Suspect]
     Active Substance: HUMAN IMMUNOGLOBULIN G
     Indication: ENCEPHALITIS AUTOIMMUNE
     Dosage: UNK
     Route: 042
     Dates: start: 20180516, end: 20180516
  6. ZONISAMIDE. [Concomitant]
     Active Substance: ZONISAMIDE
     Dosage: 50 MG, TID
  7. KEPPRA [Concomitant]
     Active Substance: LEVETIRACETAM
     Dosage: 375 MG, TID
  8. PREDSIM [Concomitant]
     Active Substance: PREDNISOLONE
     Dosage: 20 MG, QD
  9. GARDENAL                           /00023201/ [Concomitant]
     Active Substance: PHENOBARBITAL
     Dosage: 30 DROP, BID
  10. TYLENOL [Concomitant]
     Active Substance: ACETAMINOPHEN
  11. SOLU-MEDROL [Concomitant]
     Active Substance: METHYLPREDNISOLONE SODIUM SUCCINATE
     Dosage: 20 MG, UNK
  12. DIPIRONE [Concomitant]
     Active Substance: METAMIZOLE SODIUM
     Indication: PREMEDICATION
     Dosage: UNK
     Dates: start: 20180913

REACTIONS (4)
  - Generalised tonic-clonic seizure [Recovered/Resolved]
  - Pyrexia [Recovered/Resolved]
  - Hypersensitivity [Recovered/Resolved]
  - Rash [Recovered/Resolved]

NARRATIVE: CASE EVENT DATE: 20180516
